FAERS Safety Report 5765187-7 (Version None)
Quarter: 2008Q2

REPORT INFORMATION
  Report Type: 
  Country: None (occurrence: None)
  Receive Date: 20080611
  Receipt Date: 20080602
  Transmission Date: 20081010
  Serious: Yes (Death, Hospitalization)
  Sender: FDA-Public Use
  Company Number: DE-AMGEN-US280418

PATIENT
  Sex: Male

DRUGS (1)
  1. ENBREL [Suspect]
     Indication: POLYARTHRITIS
     Dosage: LYOPHILIZED, 50 MG WEEKLY
     Route: 058
     Dates: start: 20060901, end: 20070401

REACTIONS (4)
  - DERMATITIS [None]
  - METASTATIC BRONCHIAL CARCINOMA [None]
  - PRURITUS [None]
  - UPPER RESPIRATORY TRACT INFECTION [None]
